FAERS Safety Report 9633573 (Version 2)
Quarter: 2013Q4

REPORT INFORMATION
  Report Type: Spontaneous
  Country: JP (occurrence: JP)
  Receive Date: 20131021
  Receipt Date: 20131021
  Transmission Date: 20140711
  Serious: Yes (Life-Threatening)
  Sender: FDA-Public Use
  Company Number: PHHY2013JP113079

PATIENT
  Sex: Male

DRUGS (3)
  1. NEORAL [Suspect]
     Indication: APLASTIC ANAEMIA
     Dosage: 20 MG, DAILY
     Route: 048
     Dates: end: 20131003
  2. BAKTAR [Suspect]
     Dosage: 1 DF, DAILY
     Route: 048
     Dates: end: 20131003
  3. KANAMYCIN [Concomitant]
     Dosage: 750 MG
     Route: 048

REACTIONS (1)
  - Hyponatraemia [Not Recovered/Not Resolved]
